FAERS Safety Report 4388848-3 (Version None)
Quarter: 2004Q2

REPORT INFORMATION
  Report Type: 
  Country: None (occurrence: None)
  Receive Date: 20040624
  Receipt Date: 20030404
  Transmission Date: 20050107
  Serious: Yes (Hospitalization, Other)
  Sender: FDA-Public Use
  Company Number: 2001045763ZA

PATIENT
  Age: 57 Year
  Sex: Female
  Weight: 102 kg

DRUGS (1)
  1. EPLERENONE [Suspect]
     Indication: CARDIAC FAILURE
     Dosage: 25 MG , QD, ORAL
     Route: 048
     Dates: start: 20010209

REACTIONS (3)
  - FATIGUE [None]
  - HYPOTENSION [None]
  - SYNCOPE [None]
